FAERS Safety Report 14637403 (Version 1)
Quarter: 2018Q1

REPORT INFORMATION
  Report Type: Spontaneous
  Country: US (occurrence: US)
  Receive Date: 20180314
  Receipt Date: 20180314
  Transmission Date: 20180509
  Serious: No
  Sender: FDA-Public Use
  Company Number: US-ALLERGAN-1773092US

PATIENT
  Age: 6 Decade
  Sex: Female

DRUGS (1)
  1. HYDROCODONE BITARTRATE;ACETAMINOPHEN UNK [Suspect]
     Active Substance: ACETAMINOPHEN\HYDROCODONE BITARTRATE
     Indication: PRODUCT USED FOR UNKNOWN INDICATION
     Dosage: UNK
     Route: 048
     Dates: start: 201712

REACTIONS (4)
  - Adverse event [Unknown]
  - Drug ineffective [Unknown]
  - Adverse drug reaction [Unknown]
  - Malaise [Unknown]

NARRATIVE: CASE EVENT DATE: 201712
